FAERS Safety Report 18340221 (Version 2)
Quarter: 2020Q4

REPORT INFORMATION
  Report Type: Spontaneous
  Country: JP (occurrence: JP)
  Receive Date: 20201002
  Receipt Date: 20201027
  Transmission Date: 20210113
  Serious: Yes (Death, Other)
  Sender: FDA-Public Use
  Company Number: JP-009507513-2009JPN002644J

PATIENT
  Age: 8 Decade
  Sex: Male

DRUGS (3)
  1. ZERBAXA [Suspect]
     Active Substance: CEFTOLOZANE SULFATE\TAZOBACTAM SODIUM
     Indication: PNEUMONIA PSEUDOMONAL
     Dosage: 3 GRAM, TID
     Route: 041
     Dates: start: 20200918, end: 20200923
  2. ZOSYN [Concomitant]
     Active Substance: PIPERACILLIN SODIUM\TAZOBACTAM SODIUM
     Indication: PNEUMONIA PSEUDOMONAL
     Dosage: UNK
     Route: 051
     Dates: start: 20200828, end: 20200910
  3. VFEND [Concomitant]
     Active Substance: VORICONAZOLE
     Indication: ASPERGILLUS INFECTION
     Dosage: UNK
     Route: 065
     Dates: start: 20200910, end: 20200922

REACTIONS (2)
  - Aspergillus infection [Fatal]
  - Pneumonia pseudomonal [Fatal]

NARRATIVE: CASE EVENT DATE: 20200923
